FAERS Safety Report 9692280 (Version 2)
Quarter: 2013Q4

REPORT INFORMATION
  Report Type: Spontaneous
  Country: US (occurrence: US)
  Receive Date: 20131118
  Receipt Date: 20131227
  Transmission Date: 20140711
  Serious: Yes (Hospitalization)
  Sender: FDA-Public Use
  Company Number: US-BRISTOL-MYERS SQUIBB COMPANY-19797588

PATIENT
  Age: 62 Year
  Sex: Male
  Weight: 118.82 kg

DRUGS (5)
  1. BYDUREON [Suspect]
     Indication: TYPE 2 DIABETES MELLITUS
     Route: 058
     Dates: start: 201204, end: 201310
  2. METFORMIN [Concomitant]
     Dates: start: 2009, end: 2013
  3. COUMADIN [Concomitant]
     Indication: PULMONARY EMBOLISM
     Dates: start: 2013
  4. LANTUS [Concomitant]
     Indication: TYPE 2 DIABETES MELLITUS
  5. AMARYL [Concomitant]
     Dates: start: 2009, end: 2011

REACTIONS (1)
  - Adenocarcinoma of colon [Unknown]
